FAERS Safety Report 20037510 (Version 7)
Quarter: 2025Q3

REPORT INFORMATION
  Report Type: Spontaneous
  Country: EU (occurrence: EU)
  Receive Date: 20211105
  Receipt Date: 20250714
  Transmission Date: 20251021
  Serious: Yes (Hospitalization, Other)
  Sender: MYLAN
  Company Number: EU-CELLTRION HEALTHCARE HUNGARY KFT-2021PT010339

PATIENT
  Age: 72 Year
  Sex: Male

DRUGS (3)
  1. METHOTREXATE [Suspect]
     Active Substance: METHOTREXATE
     Indication: Hidradenitis
  2. REMICADE [Suspect]
     Active Substance: INFLIXIMAB
     Indication: Hidradenitis
  3. METHOTREXATE [Concomitant]
     Active Substance: METHOTREXATE
     Indication: Hidradenitis

REACTIONS (7)
  - Diffuse large B-cell lymphoma stage IV [Recovered/Resolved]
  - Sepsis [Unknown]
  - Epstein-Barr virus associated lymphoma [Recovered/Resolved]
  - Non-Hodgkin^s lymphoma unspecified histology aggressive stage IV [Recovered/Resolved]
  - Off label use [Unknown]
  - Drug effective for unapproved indication [Unknown]
  - Therapy non-responder [Unknown]

NARRATIVE: CASE EVENT DATE: 20200101
